FAERS Safety Report 7745220-3 (Version None)
Quarter: 2011Q3

REPORT INFORMATION
  Report Type: 
  Country: None (occurrence: None)
  Receive Date: 20110907
  Receipt Date: 20110817
  Transmission Date: 20111222
  Serious: Yes (Hospitalization)
  Sender: FDA-Public Use
  Company Number: JPI-P-016275

PATIENT
  Age: 57 Year
  Sex: Female
  Weight: 62.5964 kg

DRUGS (11)
  1. ZIPRASIDONE HYDROCHLORIDE [Suspect]
     Indication: BIPOLAR DISORDER
     Dates: end: 20110101
  2. BUPRENORPHINE HCL AND NALOXONE HCL [Concomitant]
  3. FLUOXETINE [Concomitant]
  4. IBANDRONATE SODIUM [Concomitant]
  5. UNSPECIFIED THYROID MEDICATION [Concomitant]
  6. BENZTROPINE MESYLATE [Suspect]
     Indication: RESTLESSNESS
     Dates: start: 20110101, end: 20110801
  7. XYREM [Suspect]
     Indication: CATAPLEXY
     Dosage: 4.5 (2.25, 2 IN 1 D), ORAL (TITRATING DOSE), ORAL 9 (4.5, 2 IN 1 D), ORAL
     Route: 048
     Dates: start: 20110630
  8. XYREM [Suspect]
     Indication: SLEEP APNOEA SYNDROME
     Dosage: 4.5 (2.25, 2 IN 1 D), ORAL (TITRATING DOSE), ORAL 9 (4.5, 2 IN 1 D), ORAL
     Route: 048
     Dates: start: 20110630
  9. XYREM [Suspect]
     Indication: CATAPLEXY
     Dosage: 4.5 (2.25, 2 IN 1 D), ORAL (TITRATING DOSE), ORAL 9 (4.5, 2 IN 1 D), ORAL
     Route: 048
     Dates: start: 20110701
  10. XYREM [Suspect]
     Indication: SLEEP APNOEA SYNDROME
     Dosage: 4.5 (2.25, 2 IN 1 D), ORAL (TITRATING DOSE), ORAL 9 (4.5, 2 IN 1 D), ORAL
     Route: 048
     Dates: start: 20110701
  11. RABEPRAZOLE SODIUM [Concomitant]

REACTIONS (5)
  - RESTLESSNESS [None]
  - DRUG INTERACTION [None]
  - DELIRIUM [None]
  - LOSS OF CONSCIOUSNESS [None]
  - FEELING COLD [None]
